FAERS Safety Report 23101312 (Version 1)
Quarter: 2023Q4

REPORT INFORMATION
  Report Type: Spontaneous
  Country: CN (occurrence: CN)
  Receive Date: 20231024
  Receipt Date: 20231024
  Transmission Date: 20240109
  Serious: Yes (Life-Threatening)
  Sender: FDA-Public Use
  Company Number: CN-BEH-2023164486

PATIENT
  Age: 22 Year
  Sex: Male
  Weight: 50 kg

DRUGS (5)
  1. ALBURX [Suspect]
     Active Substance: ALBUMIN HUMAN
     Indication: Hypoproteinaemia
     Dosage: 20 GRAM, OD
     Route: 041
     Dates: start: 20231012, end: 20231014
  2. DOLUTEGRAVIR SODIUM\LAMIVUDINE [Concomitant]
     Active Substance: DOLUTEGRAVIR SODIUM\LAMIVUDINE
     Indication: Acquired immunodeficiency syndrome
     Dosage: 1 TABLET, OD
     Route: 048
     Dates: start: 20230930, end: 20231016
  3. FLUCONAZOLE [Concomitant]
     Active Substance: FLUCONAZOLE
     Indication: Fungal infection
     Dosage: 0.4 GRAM, OD
     Route: 041
     Dates: start: 20231011, end: 20231014
  4. CEFTRIAXONE SODIUM [Concomitant]
     Active Substance: CEFTRIAXONE SODIUM
     Indication: Syphilis
     Dosage: 2 GRAM, OD
     Route: 041
     Dates: start: 20231007, end: 20231014
  5. GANCICLOVIR [Concomitant]
     Active Substance: GANCICLOVIR
     Indication: Viral infection
     Dosage: 0.25 GRAM, BID
     Route: 041
     Dates: start: 20231007, end: 20231016

REACTIONS (10)
  - Anaphylactic shock [Recovering/Resolving]
  - Loss of consciousness [Recovering/Resolving]
  - Unresponsive to stimuli [Recovering/Resolving]
  - Convulsions local [Recovering/Resolving]
  - Blood pressure increased [Recovering/Resolving]
  - Heart rate increased [Recovering/Resolving]
  - Oxygen saturation decreased [Recovering/Resolving]
  - Tachypnoea [Recovering/Resolving]
  - Blood glucose decreased [Recovering/Resolving]
  - Rales [Recovering/Resolving]

NARRATIVE: CASE EVENT DATE: 20231014
